FAERS Safety Report 7365305-3 (Version None)
Quarter: 2011Q1

REPORT INFORMATION
  Report Type: 
  Country: None (occurrence: None)
  Receive Date: 20110322
  Receipt Date: 20110310
  Transmission Date: 20110831
  Serious: No
  Sender: FDA-Public Use
  Company Number: US-BIOGENIDEC-2011BI009491

PATIENT
  Sex: Male

DRUGS (2)
  1. TYSABRI [Suspect]
     Indication: MULTIPLE SCLEROSIS
     Route: 042
     Dates: start: 20090501
  2. TYSABRI [Suspect]
     Route: 042
     Dates: start: 20061001, end: 20081001

REACTIONS (8)
  - VERTIGO POSITIONAL [None]
  - GAIT DISTURBANCE [None]
  - DIZZINESS [None]
  - FATIGUE [None]
  - DEPRESSION [None]
  - MUSCLE SPASTICITY [None]
  - MUSCULAR WEAKNESS [None]
  - MUSCLE SPASMS [None]
